FAERS Safety Report 8478923-6 (Version None)
Quarter: 2012Q2

REPORT INFORMATION
  Report Type: 
  Country: None (occurrence: None)
  Receive Date: 20120629
  Receipt Date: 20120620
  Transmission Date: 20120825
  Serious: Yes (Other)
  Sender: FDA-Public Use
  Company Number: CO-JNJFOC-20120611992

PATIENT
  Sex: Male

DRUGS (2)
  1. ISONIAZID [Concomitant]
     Route: 065
  2. REMICADE [Suspect]
     Indication: ANKYLOSING SPONDYLITIS
     Route: 042
     Dates: start: 20120601

REACTIONS (4)
  - INFUSION RELATED REACTION [None]
  - BLOOD PRESSURE INCREASED [None]
  - RESPIRATORY DISTRESS [None]
  - ARRHYTHMIA [None]
